FAERS Safety Report 4627034-6 (Version None)
Quarter: 2005Q1

REPORT INFORMATION
  Report Type: 
  Country: None (occurrence: None)
  Receive Date: 20050331
  Receipt Date: 20050321
  Transmission Date: 20050727
  Serious: Yes (Other)
  Sender: FDA-Public Use
  Company Number: 2005023709

PATIENT
  Age: 84 Year
  Sex: Male
  Weight: 71.6683 kg

DRUGS (7)
  1. TIKOSYN [Suspect]
     Indication: ATRIAL FIBRILLATION
     Dosage: 100 MG (500 MCG, TWICE A DAY),  ORAL
     Route: 048
     Dates: start: 20050121, end: 20050101
  2. WARFARIN SODIUM [Concomitant]
  3. LEVOTHYROXINE SODIUM [Concomitant]
  4. MORNIFLUMATE (MORNIFLUMATE) [Concomitant]
  5. THYROID TAB [Concomitant]
  6. ZOLPIDEM TARTRATE [Concomitant]
  7. WARFARIN SODIUM [Concomitant]

REACTIONS (3)
  - NIGHT BLINDNESS [None]
  - VISION BLURRED [None]
  - VITREOUS FLOATERS [None]
